FAERS Safety Report 6161931-8 (Version None)
Quarter: 2009Q2

REPORT INFORMATION
  Report Type: 
  Country: None (occurrence: None)
  Receive Date: 20090417
  Receipt Date: 20090417
  Transmission Date: 20091009
  Serious: Yes (Hospitalization)
  Sender: FDA-Public Use
  Company Number: None

PATIENT
  Age: 63 Year
  Sex: Male
  Weight: 60.5 kg

DRUGS (7)
  1. TAMSULOSIN HCL [Suspect]
     Indication: BENIGN PROSTATIC HYPERPLASIA
     Dosage: 0.2 MG /D, ORAL
     Route: 048
     Dates: start: 20081201
  2. SOLIFENACIN BLINDED(CODE NOT BROKEN) [Suspect]
     Indication: HYPERTONIC BLADDER
     Dates: start: 20090120, end: 20090202
  3. PRAVASTATIN SODIUM [Suspect]
  4. MENTAX (BUTENAFINE HYDROCHLORIDE) [Suspect]
  5. LOXOPROFEN [Suspect]
  6. MESADORIN S (LEVOGLUTAMIDE, SODIUM GUALENATE) [Concomitant]
  7. CEFACLOR [Concomitant]

REACTIONS (2)
  - LIMB TRAUMATIC AMPUTATION [None]
  - SKIN GRAFT [None]
